FAERS Safety Report 15998166 (Version 1)
Quarter: 2019Q1

REPORT INFORMATION
  Report Type: Report from Study
  Country: BE (occurrence: BE)
  Receive Date: 20190223
  Receipt Date: 20190223
  Transmission Date: 20190418
  Serious: Yes (Life-Threatening)
  Sender: FDA-Public Use
  Company Number: BE-ACCORD-107971

PATIENT
  Age: 2 Year
  Sex: Male

DRUGS (16)
  1. DIPEPTIVEN [Concomitant]
     Active Substance: ALANYL GLUTAMINE
     Route: 042
  2. TOBRAMYCIN. [Concomitant]
     Active Substance: TOBRAMYCIN
     Indication: THERAPEUTIC PROCEDURE
     Route: 065
  3. IVEGAM CMV [Concomitant]
     Active Substance: HUMAN CYTOMEGALOVIRUS IMMUNE GLOBULIN
     Indication: INFECTION PROPHYLAXIS
     Dosage: 1 ML/KG, (AT DAYS 1, 7, 14, 28,42,70, AND98)
     Route: 065
  4. TACROLIMUS. [Suspect]
     Active Substance: TACROLIMUS
     Indication: LIVER TRANSPLANT
     Dosage: (TROUGH LEVEL AT 15 NG/ML)
     Route: 065
  5. IMURAN [Suspect]
     Active Substance: AZATHIOPRINE
     Indication: INTESTINAL TRANSPLANT
     Dosage: 1 MG/KG, QD (0.5-1MG/KG/DAY)
     Route: 065
  6. COLIMYCINE (COLISTIN SULFATE) [Concomitant]
     Active Substance: COLISTIN SULFATE
     Indication: THERAPEUTIC PROCEDURE
     Dosage: 2 X 10^6 UNITS, UNKNOWN FREQ.
     Route: 065
  7. CYMEVENE [Concomitant]
     Active Substance: GANCICLOVIR
     Indication: INFECTION PROPHYLAXIS
     Dosage: 10 MG/KG, QD (2 DOSES OF 5 MG/KG/DAY)
     Route: 065
  8. SOLU-MEDROL [Suspect]
     Active Substance: METHYLPREDNISOLONE SODIUM SUCCINATE
     Indication: LIVER TRANSPLANT
     Route: 042
  9. NYSTATIN. [Concomitant]
     Active Substance: NYSTATIN
     Indication: THERAPEUTIC PROCEDURE
     Route: 065
  10. TAZOCIN [Concomitant]
     Active Substance: PIPERACILLIN SODIUM\TAZOBACTAM SODIUM
     Indication: INFECTION PROPHYLAXIS
     Dosage: 12 G, QD (3 DOSES OF 4G/DAY)
     Route: 065
  11. BACTRIM [Concomitant]
     Active Substance: SULFAMETHOXAZOLE\TRIMETHOPRIM
     Indication: INFECTION PROPHYLAXIS
     Dosage: 80 MG, UNKNOWN FREQ. (EVERY 2 DAYS)
     Route: 065
  12. AMPHOTERICIN B. [Concomitant]
     Active Substance: AMPHOTERICIN B
     Indication: INFECTION PROPHYLAXIS
     Route: 065
  13. SIMULECT [Suspect]
     Active Substance: BASILIXIMAB
     Indication: LIVER TRANSPLANT
     Dosage: (DAYS 1 AND 4)
     Route: 065
  14. MEDROL [Suspect]
     Active Substance: METHYLPREDNISOLONE
     Indication: LIVER TRANSPLANT
     Route: 048
  15. ALITRAQ [Concomitant]
     Dosage: QD
     Route: 065
  16. DIFLUCAN [Concomitant]
     Active Substance: FLUCONAZOLE
     Indication: INFECTION PROPHYLAXIS
     Dosage: 6 MG/KG, QD (2 DOSES OF 3 MG/DAY)
     Route: 065

REACTIONS (1)
  - Candida infection [Recovered/Resolved]
